FAERS Safety Report 5401491-X (Version None)
Quarter: 2007Q3

REPORT INFORMATION
  Report Type: 
  Country: None (occurrence: None)
  Receive Date: 20070731
  Receipt Date: 20060920
  Transmission Date: 20080115
  Serious: No
  Sender: FDA-Public Use
  Company Number: A0620868A

PATIENT
  Sex: Female

DRUGS (2)
  1. DYAZIDE [Suspect]
     Indication: MENIERE'S DISEASE
     Route: 048
  2. WELLBUTRIN XL [Suspect]
     Indication: DEPRESSION
     Route: 048

REACTIONS (7)
  - NAUSEA [None]
  - NERVOUSNESS [None]
  - PRURITUS [None]
  - PSYCHOMOTOR HYPERACTIVITY [None]
  - SWELLING [None]
  - TREMOR [None]
  - VIRAL INFECTION [None]
